FAERS Safety Report 9914581 (Version 3)
Quarter: 2014Q2

REPORT INFORMATION
  Report Type: Spontaneous
  Country: US (occurrence: US)
  Receive Date: 20140220
  Receipt Date: 20140512
  Transmission Date: 20141212
  Serious: Yes (Death)
  Sender: FDA-Public Use
  Company Number: US-PFIZER INC-2014047466

PATIENT
  Age: 67 Year
  Sex: Male

DRUGS (2)
  1. XALKORI [Suspect]
     Indication: OESOPHAGEAL CARCINOMA
     Dosage: 250 MG, UNK
     Dates: start: 20130614
  2. XALKORI [Suspect]
     Dosage: 250 MG, 2X/DAY
     Dates: start: 20130617

REACTIONS (3)
  - Disease progression [Fatal]
  - Oesophageal carcinoma [Fatal]
  - Off label use [Unknown]
